FAERS Safety Report 9487137 (Version 1)
Quarter: 2013Q3

REPORT INFORMATION
  Report Type: Spontaneous
  Country: GB (occurrence: GB)
  Receive Date: 20130829
  Receipt Date: 20130829
  Transmission Date: 20140515
  Serious: Yes (Other)
  Sender: FDA-Public Use
  Company Number: GB-TEVA-428199ISR

PATIENT
  Age: 56 Year
  Sex: Male
  Weight: 88.9 kg

DRUGS (5)
  1. ATORVASTATIN [Suspect]
     Route: 048
     Dates: start: 20130702
  2. ASPIRIN [Concomitant]
  3. CLOPIDOGREL [Concomitant]
  4. BISOPROLOL FUMARATE [Concomitant]
  5. LOSARTAN POTASSIUM [Concomitant]

REACTIONS (5)
  - Epistaxis [Not Recovered/Not Resolved]
  - Myalgia [Not Recovered/Not Resolved]
  - Arthralgia [Not Recovered/Not Resolved]
  - Pain in extremity [Not Recovered/Not Resolved]
  - Musculoskeletal pain [Not Recovered/Not Resolved]
